FAERS Safety Report 16048689 (Version 2)
Quarter: 2020Q1

REPORT INFORMATION
  Report Type: Report from Study
  Country: US (occurrence: US)
  Receive Date: 20190307
  Receipt Date: 20200102
  Transmission Date: 20200409
  Serious: Yes (Hospitalization, Other)
  Sender: FDA-Public Use
  Company Number: US-OTSUKA-2019_002772

PATIENT
  Age: 49 Year
  Sex: Male
  Weight: 84.35 kg

DRUGS (1)
  1. TOLVAPTAN [Suspect]
     Active Substance: TOLVAPTAN
     Indication: PRODUCT USED FOR UNKNOWN INDICATION
     Dosage: UNK
     Route: 065
     Dates: start: 20181109

REACTIONS (3)
  - Haematuria [Unknown]
  - Headache [Unknown]
  - Cyst rupture [Unknown]

NARRATIVE: CASE EVENT DATE: 20190128
